FAERS Safety Report 6357725-0 (Version None)
Quarter: 2009Q3

REPORT INFORMATION
  Report Type: 
  Country: None (occurrence: None)
  Receive Date: 20090916
  Receipt Date: 20090911
  Transmission Date: 20100115
  Serious: Yes (Life-Threatening)
  Sender: FDA-Public Use
  Company Number: JP-BRISTOL-MYERS SQUIBB COMPANY-14778336

PATIENT
  Age: 7 Decade
  Sex: Female

DRUGS (3)
  1. TAXOL [Suspect]
     Indication: BREAST CANCER
     Dosage: TAKEN 3 YEARS AGO
     Route: 041
  2. CYCLOPHOSPHAMIDE [Suspect]
  3. EPIRUBICIN HCL [Suspect]

REACTIONS (1)
  - LEUKAEMIA [None]
